FAERS Safety Report 8933014 (Version 1)
Quarter: 2012Q4

REPORT INFORMATION
  Report Type: 
  Country: CA (occurrence: CA)
  Receive Date: 20121129
  Receipt Date: 20121129
  Transmission Date: 20130627
  Serious: Yes (Other)
  Sender: FDA-Public Use
  Company Number: CA-BAYER-2012-123812

PATIENT
  Age: 42 Year
  Sex: Female

DRUGS (1)
  1. MIRENA [Suspect]
     Dosage: 20 mcg/24hr, CONT
     Route: 015
     Dates: end: 20121124

REACTIONS (4)
  - Anaphylactic reaction [Recovering/Resolving]
  - Nausea [Recovering/Resolving]
  - Rash [Recovering/Resolving]
  - Headache [None]
